FAERS Safety Report 8545315-0 (Version None)
Quarter: 2012Q3

REPORT INFORMATION
  Report Type: 
  Country: None (occurrence: None)
  Receive Date: 20120727
  Receipt Date: 20120716
  Transmission Date: 20120928
  Serious: Yes (Hospitalization, Disabling, Other)
  Sender: FDA-Public Use
  Company Number: US-009507513-1203USA03347

PATIENT

DRUGS (28)
  1. FOSAMAX [Suspect]
     Dosage: 70 MG, UNK
     Route: 048
     Dates: start: 20080101, end: 20101001
  2. COMBIVENT [Concomitant]
     Indication: ASTHMA
     Dates: start: 20030101, end: 20090101
  3. PROVENTIL [Concomitant]
     Indication: ASTHMA
     Dates: start: 20030101, end: 20090101
  4. FOSAMAX [Suspect]
  5. ARAVA [Concomitant]
     Indication: ARTHRITIS
     Dosage: 20 MG, QD
     Dates: start: 20010101
  6. CELEBREX [Concomitant]
     Indication: ARTHRITIS
     Dosage: 200 MG, QD
     Dates: start: 20010101, end: 20080101
  7. GUAIFENESIN [Concomitant]
     Indication: UPPER RESPIRATORY TRACT INFECTION
     Dates: start: 20020101
  8. TILADE [Concomitant]
     Indication: ASTHMA
     Dates: start: 20030101, end: 20090101
  9. METICORTEN [Concomitant]
     Dosage: 2.5-5
     Dates: start: 20020101
  10. FOSAMAX [Suspect]
     Indication: OSTEOPOROSIS
  11. LIPITOR [Concomitant]
     Indication: BLOOD CHOLESTEROL
     Dosage: 20 MG, QD
     Dates: start: 19980101
  12. AMOXICILLIN [Concomitant]
     Indication: UPPER RESPIRATORY TRACT INFECTION
     Dates: start: 20020101, end: 20090101
  13. ASTELIN [Concomitant]
     Indication: HYPERSENSITIVITY
     Dates: start: 20040101
  14. CALCIUM (UNSPECIFIED) (+) MAGNESIUM (UNSPECIFIED) (+) ZINC (UNSPECIFIE [Concomitant]
     Dosage: UNK, UNK
     Dates: start: 20030101
  15. ADVAIR [Concomitant]
     Indication: HYPERSENSITIVITY
     Dosage: UNK UNK, PRN
     Dates: start: 20040101
  16. FLOVENT [Concomitant]
     Dates: start: 20030101, end: 20090101
  17. PLAQUENIL [Concomitant]
     Indication: SYNOVITIS
     Dosage: 200 MG, QD
  18. OMEGA-3 MARINE TRIGLYCERIDES [Concomitant]
     Dosage: UNK
     Dates: start: 19940101
  19. CALCIUM (UNSPECIFIED) (+) VITAMIN D (UNSPECIFIED) [Concomitant]
     Dates: start: 20030101
  20. FOSAMAX [Suspect]
     Indication: OSTEOPENIA
     Dosage: 70 MG, UNK
     Route: 048
     Dates: start: 20040501, end: 20080101
  21. ALBUTEROL [Concomitant]
     Indication: ASTHMA
     Dosage: UNK UNK, PRN
     Dates: start: 20040101
  22. CLARITIN-D [Concomitant]
     Indication: HYPERSENSITIVITY
     Route: 048
     Dates: start: 20020101, end: 20090101
  23. FLONASE [Concomitant]
     Indication: HYPERSENSITIVITY
     Dates: start: 20020101, end: 20020101
  24. SINGULAIR [Concomitant]
     Dosage: UNK UNK, PRN
     Route: 048
     Dates: start: 20020101, end: 20070101
  25. ATREXEL [Concomitant]
     Dosage: 10 MG, BID
     Dates: start: 20021201
  26. ASCORBIC ACID [Concomitant]
     Dosage: 500 MG, UNK
     Dates: start: 20030101
  27. PHENERGAN EXPECTORANT W/ CODEINE [Concomitant]
     Indication: UPPER RESPIRATORY TRACT INFECTION
     Dates: start: 20020101, end: 20090101
  28. LEFLUNOMIDE [Concomitant]
     Dosage: 20 MG, QD

REACTIONS (63)
  - GALLBLADDER DISORDER [None]
  - VENTRICULAR EXTRASYSTOLES [None]
  - HYPERTENSION [None]
  - CARDIAC DISORDER [None]
  - SPONDYLOARTHROPATHY [None]
  - DRUG INTERACTION [None]
  - TENOSYNOVITIS [None]
  - FRACTURE DELAYED UNION [None]
  - TOOTH DISORDER [None]
  - CERUMEN IMPACTION [None]
  - DERMATITIS [None]
  - THYROID DISORDER [None]
  - CHOLECYSTITIS [None]
  - RASH [None]
  - OSTEOMYELITIS CHRONIC [None]
  - STRESS FRACTURE [None]
  - LIVER FUNCTION TEST ABNORMAL [None]
  - CHRONIC OBSTRUCTIVE PULMONARY DISEASE [None]
  - RHEUMATOID ARTHRITIS [None]
  - DIZZINESS [None]
  - RENAL IMPAIRMENT [None]
  - CAROTID ARTERY STENOSIS [None]
  - OSTEOPOROSIS [None]
  - VIRAL INFECTION [None]
  - LUMBAR SPINAL STENOSIS [None]
  - CAROTID BRUIT [None]
  - ERYTHEMA [None]
  - VERTIGO [None]
  - FEMUR FRACTURE [None]
  - SUPRAVENTRICULAR TACHYCARDIA [None]
  - ATRIAL FIBRILLATION [None]
  - MYOCARDIAL ISCHAEMIA [None]
  - TONSILLECTOMY [None]
  - ELECTROCARDIOGRAM ST-T CHANGE [None]
  - STAPHYLOCOCCAL INFECTION [None]
  - DEVICE BREAKAGE [None]
  - ROTATOR CUFF SYNDROME [None]
  - POLLAKIURIA [None]
  - DRUG INEFFECTIVE [None]
  - ADVERSE EVENT [None]
  - TACHYCARDIA [None]
  - UTERINE DILATION AND CURETTAGE [None]
  - ADENOIDECTOMY [None]
  - LOW TURNOVER OSTEOPATHY [None]
  - BURSITIS [None]
  - ARTHROPATHY [None]
  - TENSION HEADACHE [None]
  - CORONARY ARTERY DISEASE [None]
  - FLATULENCE [None]
  - FATIGUE [None]
  - DYSAESTHESIA [None]
  - ANGINA UNSTABLE [None]
  - UPPER RESPIRATORY TRACT INFECTION [None]
  - DIABETES MELLITUS [None]
  - INTERVERTEBRAL DISC DEGENERATION [None]
  - FRACTURE NONUNION [None]
  - CATARACT [None]
  - URINARY TRACT DISORDER [None]
  - CELLULITIS [None]
  - JOINT SWELLING [None]
  - GLUCOSE TOLERANCE IMPAIRED [None]
  - CHOLELITHIASIS [None]
  - GASTROOESOPHAGEAL REFLUX DISEASE [None]
